FAERS Safety Report 6646665-5 (Version None)
Quarter: 2010Q1

REPORT INFORMATION
  Report Type: 
  Country: None (occurrence: None)
  Receive Date: 20100317
  Receipt Date: 20100305
  Transmission Date: 20100710
  Serious: Yes (Hospitalization)
  Sender: FDA-Public Use
  Company Number: UTC-000928

PATIENT
  Age: 67 Year
  Sex: Female

DRUGS (3)
  1. TYVASO [Suspect]
     Indication: PULMONARY ARTERIAL HYPERTENSION
     Dosage: 216 MCG (54 MCG, 4 IN 1 D), INHALATION
     Route: 055
     Dates: start: 20091111
  2. ATACAND [Concomitant]
  3. ACIPHEX [Concomitant]

REACTIONS (5)
  - ATRIAL FIBRILLATION [None]
  - ATRIAL FLUTTER [None]
  - ATRIOVENTRICULAR BLOCK COMPLETE [None]
  - GENERAL PHYSICAL HEALTH DETERIORATION [None]
  - REFUSAL OF TREATMENT BY PATIENT [None]
